FAERS Safety Report 9413844 (Version 1)
Quarter: 2013Q3

REPORT INFORMATION
  Report Type: Report from Study
  Country: IT (occurrence: IT)
  Receive Date: 20130723
  Receipt Date: 20130723
  Transmission Date: 20140515
  Serious: Yes (Life-Threatening)
  Sender: FDA-Public Use
  Company Number: IT-009507513-1307ITA011235

PATIENT
  Sex: 0

DRUGS (4)
  1. MK-7365 [Suspect]
     Indication: GLIOBLASTOMA
     Dosage: 75 MG/M*2 DAILY
  2. GLIADEL [Concomitant]
     Indication: GLIOBLASTOMA
  3. TRIMETHOPRIM [Concomitant]
     Indication: PROPHYLAXIS
  4. SULFAMETHOXAZOLE [Concomitant]
     Indication: PROPHYLAXIS

REACTIONS (2)
  - Blood bilirubin abnormal [Unknown]
  - Hepatotoxicity [Unknown]
